FAERS Safety Report 4502330-1 (Version None)
Quarter: 2004Q4

REPORT INFORMATION
  Report Type: 
  Country: None (occurrence: None)
  Receive Date: 20041116
  Receipt Date: 20041112
  Transmission Date: 20050328
  Serious: Yes (Hospitalization)
  Sender: FDA-Public Use
  Company Number: FR-GLAXOSMITHKLINE-B0356753A

PATIENT
  Age: 42 Year
  Sex: Male

DRUGS (5)
  1. AUGMENTIN '125' [Suspect]
     Dosage: 3G PER DAY
     Route: 048
  2. SKENAN [Suspect]
     Dosage: 30MG PER DAY
     Route: 048
  3. LAROXYL [Suspect]
     Dosage: 75MG PER DAY
     Route: 048
     Dates: start: 20021215
  4. TEMESTA [Suspect]
     Dosage: 1MG PER DAY
     Route: 048
     Dates: start: 20030101
  5. OMEPRAZOLE [Suspect]
     Dosage: 20MG PER DAY
     Route: 048

REACTIONS (3)
  - ERYTHEMA [None]
  - LYMPHADENOPATHY [None]
  - PRURIGO [None]
